FAERS Safety Report 14347584 (Version 1)
Quarter: 2018Q1

REPORT INFORMATION
  Report Type: Spontaneous
  Country: US (occurrence: US)
  Receive Date: 20180103
  Receipt Date: 20180103
  Transmission Date: 20180509
  Serious: Yes (Death, Other)
  Sender: FDA-Public Use
  Company Number: US-009507513-1712USA014648

PATIENT
  Age: 68 Year
  Sex: Female

DRUGS (8)
  1. AMITRIPTYLINE HYDROCHLORIDE. [Suspect]
     Active Substance: AMITRIPTYLINE HYDROCHLORIDE
     Route: 048
  2. DIGOXIN. [Suspect]
     Active Substance: DIGOXIN
  3. PRINIVIL [Suspect]
     Active Substance: LISINOPRIL
     Route: 048
  4. AMLODIPINE [Suspect]
     Active Substance: AMLODIPINE BESYLATE
  5. ACETAMINOPHEN (+) HYDROCODONE BITARTRATE [Suspect]
     Active Substance: ACETAMINOPHEN\HYDROCODONE BITARTRATE
  6. ATORVASTATIN [Suspect]
     Active Substance: ATORVASTATIN
  7. METOPROLOL. [Suspect]
     Active Substance: METOPROLOL
  8. OXYBUTYNIN. [Suspect]
     Active Substance: OXYBUTYNIN CHLORIDE

REACTIONS (1)
  - Death [Fatal]
